FAERS Safety Report 8800914 (Version 1)
Quarter: 2012Q4

REPORT INFORMATION
  Report Type: 
  Country: BR (occurrence: BR)
  Receive Date: 20120921
  Receipt Date: 20120921
  Transmission Date: 20130627
  Serious: Yes (Hospitalization)
  Sender: FDA-Public Use
  Company Number: BR-ASTRAZENECA-2012SE72069

PATIENT
  Age: 74 Year
  Sex: Female
  Weight: 81 kg

DRUGS (4)
  1. CRESTOR [Suspect]
     Route: 048
     Dates: start: 201202
  2. ARADOIS [Concomitant]
     Route: 048
  3. VENLAFAXIN [Concomitant]
     Route: 048
  4. EUTHYROX [Concomitant]
     Indication: HYPERTHYROIDISM
     Route: 048

REACTIONS (1)
  - Glomerulonephritis membranous [Recovering/Resolving]
